FAERS Safety Report 15370879 (Version 2)
Quarter: 2018Q4

REPORT INFORMATION
  Report Type: Spontaneous
  Country: US (occurrence: US)
  Receive Date: 20180911
  Receipt Date: 20181218
  Transmission Date: 20190204
  Serious: Yes (Other)
  Sender: FDA-Public Use
  Company Number: US-OTSUKA-2018_019802

PATIENT
  Sex: Female

DRUGS (11)
  1. LYRICA [Concomitant]
     Active Substance: PREGABALIN
     Indication: PRODUCT USED FOR UNKNOWN INDICATION
     Dosage: UNK
     Route: 065
  2. ABILIFY [Suspect]
     Active Substance: ARIPIPRAZOLE
     Indication: ANXIETY
     Dosage: UNK
     Route: 065
     Dates: start: 20140402, end: 20160402
  3. ABILIFY [Suspect]
     Active Substance: ARIPIPRAZOLE
     Indication: SOCIAL ANXIETY DISORDER
  4. ARIPIPRAZOLE. [Concomitant]
     Active Substance: ARIPIPRAZOLE
     Indication: PRODUCT USED FOR UNKNOWN INDICATION
     Dosage: UNK
     Route: 065
     Dates: start: 2013, end: 2015
  5. VENTILAN [Concomitant]
     Active Substance: ALBUTEROL SULFATE
     Indication: PRODUCT USED FOR UNKNOWN INDICATION
     Dosage: UNK
     Route: 065
  6. ABILIFY [Suspect]
     Active Substance: ARIPIPRAZOLE
     Indication: MAJOR DEPRESSION
     Dosage: UNK
     Route: 065
     Dates: start: 20110101, end: 20130101
  7. METFORMIN [Concomitant]
     Active Substance: METFORMIN HYDROCHLORIDE
     Indication: PRODUCT USED FOR UNKNOWN INDICATION
     Dosage: UNK
     Route: 065
  8. ALBUTEROL. [Concomitant]
     Active Substance: ALBUTEROL
     Indication: PRODUCT USED FOR UNKNOWN INDICATION
     Dosage: UNK
     Route: 065
  9. ALPRAZOLAM. [Concomitant]
     Active Substance: ALPRAZOLAM
     Indication: PRODUCT USED FOR UNKNOWN INDICATION
     Dosage: UNK
     Route: 065
  10. EFFEXOR [Concomitant]
     Active Substance: VENLAFAXINE HYDROCHLORIDE
     Indication: PRODUCT USED FOR UNKNOWN INDICATION
     Dosage: UNK
     Route: 065
  11. BUSPAR [Concomitant]
     Active Substance: BUSPIRONE HYDROCHLORIDE
     Indication: PRODUCT USED FOR UNKNOWN INDICATION
     Dosage: UNK
     Route: 065

REACTIONS (24)
  - Suicidal ideation [Not Recovered/Not Resolved]
  - Hypercholesterolaemia [Unknown]
  - Compulsive hoarding [Not Recovered/Not Resolved]
  - Chronic fatigue syndrome [Unknown]
  - Product use in unapproved indication [Unknown]
  - Suicide attempt [Not Recovered/Not Resolved]
  - Sexually transmitted disease [Unknown]
  - Compulsive shopping [Not Recovered/Not Resolved]
  - Impulse-control disorder [Unknown]
  - Gastrointestinal surgery [Unknown]
  - Fibromyalgia [Unknown]
  - Eating disorder [Not Recovered/Not Resolved]
  - Dermatillomania [Not Recovered/Not Resolved]
  - Cardiac disorder [Unknown]
  - Compulsive sexual behaviour [Not Recovered/Not Resolved]
  - Economic problem [Unknown]
  - Chronic obstructive pulmonary disease [Unknown]
  - Obsessive-compulsive disorder [Not Recovered/Not Resolved]
  - Diabetes mellitus [Unknown]
  - Gambling disorder [Recovered/Resolved]
  - Herpes virus infection [Unknown]
  - Gastrooesophageal reflux disease [Unknown]
  - Trichotillomania [Not Recovered/Not Resolved]
  - Migraine [Unknown]

NARRATIVE: CASE EVENT DATE: 2011
